FAERS Safety Report 4750766-6 (Version None)
Quarter: 2005Q3

REPORT INFORMATION
  Report Type: 
  Country: None (occurrence: None)
  Receive Date: 20050823
  Receipt Date: 20050408
  Transmission Date: 20060218
  Serious: Yes (Hospitalization, Disabling)
  Sender: FDA-Public Use
  Company Number: US-MERCK-0504USA01279

PATIENT
  Age: 58 Year
  Sex: Male
  Weight: 104 kg

DRUGS (18)
  1. VIOXX [Suspect]
     Indication: ARTHRITIS
     Route: 048
     Dates: start: 19990101, end: 20040901
  2. VIOXX [Suspect]
     Route: 048
     Dates: start: 19990101, end: 20040901
  3. VIOXX [Suspect]
     Indication: OSTEOARTHRITIS
     Route: 048
     Dates: start: 19990101, end: 20040901
  4. VIOXX [Suspect]
     Route: 048
     Dates: start: 19990101, end: 20040901
  5. CATAPRES [Concomitant]
     Route: 065
     Dates: start: 19950101, end: 20010101
  6. ZYRTEC [Concomitant]
     Route: 065
  7. ZITHROMAX [Concomitant]
     Route: 065
  8. CLARINEX [Concomitant]
     Route: 065
  9. AMPICILLIN [Concomitant]
     Route: 065
  10. HYDROCORTISONE ACETATE [Concomitant]
     Route: 065
  11. AMBIEN [Concomitant]
     Route: 065
  12. SOMA [Concomitant]
     Route: 065
  13. DETROL LA [Concomitant]
     Route: 065
  14. ISOSORBIDE [Concomitant]
     Route: 065
  15. KLOR-CON [Concomitant]
     Route: 065
  16. METOCLOPRAMIDE [Concomitant]
     Route: 065
  17. [THERAPY UNSPECIFIED] [Concomitant]
     Route: 065
  18. HYDROXYZINE HYDROCHLORIDE [Concomitant]
     Route: 065

REACTIONS (25)
  - ANHEDONIA [None]
  - CHEST PAIN [None]
  - CHRONIC FATIGUE SYNDROME [None]
  - CHRONIC MYELOID LEUKAEMIA [None]
  - DIALYSIS [None]
  - DYSPNOEA [None]
  - GASTROOESOPHAGEAL REFLUX DISEASE [None]
  - HAEMORRHAGE [None]
  - HYPERTENSION [None]
  - HYPOTENSION [None]
  - HYPOXIA [None]
  - ISCHAEMIC HEPATITIS [None]
  - LUNG NEOPLASM MALIGNANT [None]
  - MUSCLE SPASMS [None]
  - MYOCARDIAL INFARCTION [None]
  - NEUROPATHY [None]
  - OEDEMA PERIPHERAL [None]
  - PARAPLEGIA [None]
  - POST PROCEDURAL COMPLICATION [None]
  - PROSTATE CANCER [None]
  - RENAL FAILURE ACUTE [None]
  - RHABDOMYOLYSIS [None]
  - SPINAL CORD INFARCTION [None]
  - ULCER [None]
  - UPPER RESPIRATORY TRACT INFECTION [None]
